FAERS Safety Report 20120780 (Version 1)
Quarter: 2021Q4

REPORT INFORMATION
  Report Type: Spontaneous
  Country: CN (occurrence: CN)
  Receive Date: 20211126
  Receipt Date: 20211126
  Transmission Date: 20220303
  Serious: Yes (Other)
  Sender: FDA-Public Use
  Company Number: CN-BAXTER-2021BAX037226

PATIENT
  Age: 45 Year
  Sex: Female
  Weight: 55 kg

DRUGS (4)
  1. CYCLOPHOSPHAMIDE [Suspect]
     Active Substance: CYCLOPHOSPHAMIDE
     Indication: Hormone receptor positive breast cancer
     Dosage: CYCLOPHOSPHAMIDE 0.92G + 0.9% SODIUM CHLORIDE 100ML
     Route: 041
     Dates: start: 20211026, end: 20211026
  2. SODIUM CHLORIDE [Suspect]
     Active Substance: SODIUM CHLORIDE
     Indication: Medication dilution
     Dosage: CYCLOPHOSPHAMIDE 0.92G + 0.9% SODIUM CHLORIDE 100ML
     Route: 041
     Dates: start: 20211026, end: 20211026
  3. DEXTROSE [Suspect]
     Active Substance: DEXTROSE
     Indication: Medication dilution
     Dosage: PIRARUBICIN HYDROCHLORIDE 77 MG + 5% GLUCOSE 250ML
     Route: 041
     Dates: start: 20211026, end: 20211026
  4. PIRARUBICIN HYDROCHLORIDE [Suspect]
     Active Substance: PIRARUBICIN HYDROCHLORIDE
     Indication: Hormone receptor positive breast cancer
     Dosage: PIRARUBICIN HYDROCHLORIDE 77 MG + 5% GLUCOSE 250ML
     Route: 041
     Dates: start: 20211026, end: 20211026

REACTIONS (2)
  - White blood cell count decreased [Unknown]
  - Neutrophil count decreased [Unknown]

NARRATIVE: CASE EVENT DATE: 20211115
